FAERS Safety Report 18404062 (Version 1)
Quarter: 2020Q4

REPORT INFORMATION
  Report Type: Report from Study
  Country: NL (occurrence: NL)
  Receive Date: 20201020
  Receipt Date: 20201020
  Transmission Date: 20210114
  Serious: Yes (Hospitalization)
  Sender: FDA-Public Use
  Company Number: NL-ROCHE-2694896

PATIENT
  Age: 60 Year
  Sex: Female

DRUGS (5)
  1. ATEZOLIZUMAB. [Suspect]
     Active Substance: ATEZOLIZUMAB
     Indication: RECTAL CANCER
     Dosage: THE MOST RECENT DOSE OF ATEZOLIZUMAB WAS ON 15/MAY/2020
     Route: 058
     Dates: start: 20200407
  2. BEVACIZUMAB. [Suspect]
     Active Substance: BEVACIZUMAB
     Indication: RECTAL CANCER
     Dosage: MOST RECENT DOSE OF BEVACIZUMAB WAS ON 20/APR/2020
     Route: 042
     Dates: start: 20200323
  3. MACROGOL [Concomitant]
     Active Substance: POLYETHYLENE GLYCOLS
     Dates: start: 20200807
  4. PARACETAMOL [Concomitant]
     Active Substance: ACETAMINOPHEN
     Dates: start: 20200731
  5. LOSARTAN. [Concomitant]
     Active Substance: LOSARTAN
     Dates: start: 20200407, end: 20200812

REACTIONS (1)
  - Anastomotic leak [Recovered/Resolved]

NARRATIVE: CASE EVENT DATE: 20200812
